FAERS Safety Report 8266284-7 (Version None)
Quarter: 2012Q2

REPORT INFORMATION
  Report Type: 
  Country: None (occurrence: None)
  Receive Date: 20120406
  Receipt Date: 20120330
  Transmission Date: 20120825
  Serious: Yes (Hospitalization)
  Sender: FDA-Public Use
  Company Number: US-ACTELION-A-US2011-45071

PATIENT

DRUGS (6)
  1. REVATIO [Concomitant]
  2. FUROSEMIDE [Concomitant]
  3. EPOPROSTENOL SODIUM [Suspect]
     Indication: PULMONARY ARTERIAL HYPERTENSION
     Dosage: 57 NG/KG, PER MIN
     Route: 042
     Dates: start: 20110914
  4. COUMADIN [Concomitant]
  5. ASPIRIN [Concomitant]
  6. TRACLEER [Suspect]
     Indication: PULMONARY ARTERIAL HYPERTENSION
     Dosage: UNK
     Route: 048
     Dates: start: 20050712

REACTIONS (16)
  - SENSATION OF HEAVINESS [None]
  - WALKING DISTANCE TEST ABNORMAL [None]
  - PAIN [None]
  - FOOD POISONING [None]
  - HEARING IMPAIRED [None]
  - PLASMAPHERESIS [None]
  - HYPOAESTHESIA [None]
  - ASTHENIA [None]
  - HEADACHE [None]
  - BLOOD GLUCOSE INCREASED [None]
  - PANEL-REACTIVE ANTIBODY INCREASED [None]
  - PELVIC PAIN [None]
  - BLOOD IRON DECREASED [None]
  - DYSPNOEA [None]
  - FLUSHING [None]
  - CHEST PAIN [None]
